FAERS Safety Report 5087587-3 (Version None)
Quarter: 2006Q3

REPORT INFORMATION
  Report Type: 
  Country: None (occurrence: None)
  Receive Date: 20060824
  Receipt Date: 20060621
  Transmission Date: 20061208
  Serious: Yes (Other)
  Sender: FDA-Public Use
  Company Number: PHBS2006NL09312

PATIENT
  Sex: Female

DRUGS (1)
  1. EMSELEX EXTENDED RELEASE [Suspect]
     Dosage: 7.5 MG
     Route: 065
     Dates: start: 20060421

REACTIONS (2)
  - CONFUSIONAL STATE [None]
  - SUICIDAL IDEATION [None]
